FAERS Safety Report 5192837-9 (Version None)
Quarter: 2006Q4

REPORT INFORMATION
  Report Type: 
  Country: None (occurrence: None)
  Receive Date: 20061228
  Receipt Date: 20051205
  Transmission Date: 20070319
  Serious: No
  Sender: FDA-Public Use
  Company Number: US-GLAXOSMITHKLINE-A0584669A

PATIENT
  Age: 56 Year
  Sex: Male

DRUGS (2)
  1. FLONASE [Suspect]
     Indication: DRUG USE FOR UNKNOWN INDICATION
     Dosage: 2SPR TWICE PER DAY
     Route: 065
     Dates: start: 20051114, end: 20051201
  2. ALBUTEROL [Concomitant]

REACTIONS (2)
  - ABDOMINAL PAIN UPPER [None]
  - MEDICATION ERROR [None]
